FAERS Safety Report 8921678 (Version 1)
Quarter: 2012Q4

REPORT INFORMATION
  Report Type: Report from Study
  Country: CA (occurrence: CA)
  Receive Date: 20121121
  Receipt Date: 20121121
  Transmission Date: 20130627
  Serious: Yes (Other)
  Sender: FDA-Public Use
  Company Number: CA-JNJFOC-20121107335

PATIENT
  Age: 70 Year
  Sex: Male
  Weight: 109.5 kg

DRUGS (4)
  1. REMICADE [Suspect]
     Indication: COLITIS ULCERATIVE
     Route: 042
     Dates: start: 201208
  2. PREDNISONE [Concomitant]
     Route: 065
  3. ASACOL [Concomitant]
     Route: 065
  4. SALOFALK [Concomitant]
     Route: 065

REACTIONS (1)
  - Cataract operation [Recovered/Resolved]
